FAERS Safety Report 13384689 (Version 1)
Quarter: 2017Q1

REPORT INFORMATION
  Report Type: Spontaneous
  Country: CN (occurrence: CN)
  Receive Date: 20170329
  Receipt Date: 20170329
  Transmission Date: 20170429
  Serious: Yes (Life-Threatening)
  Sender: FDA-Public Use
  Company Number: CN-BAYER-2017-059628

PATIENT
  Age: 82 Year
  Sex: Male
  Weight: 60 kg

DRUGS (1)
  1. AVELOX [Suspect]
     Active Substance: MOXIFLOXACIN HYDROCHLORIDE
     Indication: INFECTION
     Dosage: 250 ML, QD
     Route: 041
     Dates: start: 20170123, end: 20170123

REACTIONS (3)
  - Dyspnoea [Recovered/Resolved]
  - Orthopnoea [Recovered/Resolved]
  - Flushing [Recovered/Resolved]

NARRATIVE: CASE EVENT DATE: 20170123
